FAERS Safety Report 17429813 (Version 1)
Quarter: 2020Q1

REPORT INFORMATION
  Report Type: Spontaneous
  Country: US (occurrence: US)
  Receive Date: 20200218
  Receipt Date: 20200218
  Transmission Date: 20200409
  Serious: No
  Sender: FDA-Public Use
  Company Number: US-PFIZER INC-2020063604

PATIENT
  Age: 56 Year
  Sex: Male
  Weight: 90.72 kg

DRUGS (1)
  1. SERTRALINE HCL [Suspect]
     Active Substance: SERTRALINE HYDROCHLORIDE
     Dosage: 100 MG, DAILY [100MG ONE BY MOUTH EVERYDAY]
     Route: 048

REACTIONS (4)
  - Anxiety [Unknown]
  - Feeling abnormal [Unknown]
  - Panic attack [Unknown]
  - Tinnitus [Unknown]
